FAERS Safety Report 13903343 (Version 2)
Quarter: 2020Q4

REPORT INFORMATION
  Report Type: Spontaneous
  Country: US (occurrence: US)
  Receive Date: 20170824
  Receipt Date: 20201027
  Transmission Date: 20210113
  Serious: Yes (Death, Hospitalization)
  Sender: FDA-Public Use
  Company Number: US-KAMADA LIMITED-2016US007871

PATIENT

DRUGS (6)
  1. ADVAIR HFA [Concomitant]
     Active Substance: FLUTICASONE PROPIONATE\SALMETEROL XINAFOATE
     Dosage: UNKNOWN
     Route: 065
  2. GLASSIA [Suspect]
     Active Substance: .ALPHA.1-PROTEINASE INHIBITOR HUMAN
     Indication: ALPHA-1 ANTITRYPSIN DEFICIENCY
     Dosage: 3800 MG, 1/WEEK
     Route: 042
     Dates: start: 20150401
  3. PREDNISONE. [Concomitant]
     Active Substance: PREDNISONE
     Dosage: UNKNOWN
     Route: 065
  4. XANAX [Concomitant]
     Active Substance: ALPRAZOLAM
     Dosage: UNKNOWN
     Route: 065
  5. LISINOPRIL. [Concomitant]
     Active Substance: LISINOPRIL
     Dosage: UNKNOWN
     Route: 065
  6. OXYGEN. [Concomitant]
     Active Substance: OXYGEN
     Dosage: UNKNOWN
     Route: 065

REACTIONS (3)
  - Death [Fatal]
  - Abscess [Unknown]
  - Diverticulitis [Unknown]
